FAERS Safety Report 7530294-5 (Version None)
Quarter: 2011Q2

REPORT INFORMATION
  Report Type: 
  Country: None (occurrence: None)
  Receive Date: 20110531
  Receipt Date: 20110516
  Transmission Date: 20111010
  Serious: Yes (Hospitalization, Other)
  Sender: FDA-Public Use
  Company Number: 2011MA005984

PATIENT
  Age: 20 Year
  Sex: Male

DRUGS (1)
  1. TRAMADOL HYDROCHLORIDE [Suspect]
     Indication: PAIN
     Dosage: 50 MG, 1X, IV
     Route: 042

REACTIONS (3)
  - APNOEA [None]
  - OXYGEN SATURATION DECREASED [None]
  - UNRESPONSIVE TO STIMULI [None]
